FAERS Safety Report 8087552-8 (Version None)
Quarter: 2012Q1

REPORT INFORMATION
  Report Type: 
  Country: None (occurrence: None)
  Receive Date: 20120128
  Receipt Date: 20110504
  Transmission Date: 20120608
  Serious: No
  Sender: FDA-Public Use
  Company Number: US-ABBOTT-11P-163-0717884-00

PATIENT
  Age: 39 Year
  Sex: Female

DRUGS (8)
  1. UNKNOWN MEDICATION [Concomitant]
     Indication: GASTROOESOPHAGEAL REFLUX DISEASE
     Dosage: DAILY
  2. FISH OIL [Concomitant]
     Indication: SUPPLEMENTATION THERAPY
     Dosage: DAILY
  3. VALIUM [Concomitant]
     Indication: VISUAL IMPAIRMENT
     Dosage: AS NEEDED
  4. AMITRIPTYLINE HCL [Concomitant]
     Indication: NEUROPATHY PERIPHERAL
  5. HUMIRA [Suspect]
     Indication: PSORIASIS
     Dates: start: 20110301, end: 20110429
  6. GABAPENTIN [Concomitant]
     Indication: NEUROPATHY PERIPHERAL
  7. MULTI-VITAMINS [Concomitant]
     Indication: VITAMIN SUPPLEMENTATION
     Dosage: DAILY
  8. VALIUM [Concomitant]
     Indication: ANXIETY

REACTIONS (6)
  - PSORIASIS [None]
  - INJECTION SITE PAPULE [None]
  - INJECTION SITE ERYTHEMA [None]
  - INJECTION SITE INDURATION [None]
  - CONTUSION [None]
  - INJECTION SITE HAEMATOMA [None]
